FAERS Safety Report 9054730 (Version 2)
Quarter: 2013Q1

REPORT INFORMATION
  Report Type: Spontaneous
  Country: GB (occurrence: GB)
  Receive Date: 20130208
  Receipt Date: 20130214
  Transmission Date: 20140127
  Serious: Yes (Other)
  Sender: FDA-Public Use
  Company Number: PHFR2013GB000846

PATIENT
  Age: 38 None
  Sex: Male

DRUGS (4)
  1. CLOZARIL [Suspect]
     Indication: SCHIZOPHRENIA
     Dosage: UNK
     Route: 048
     Dates: start: 20081017
  2. CLOZARIL [Suspect]
     Dosage: 500 MG
     Route: 048
  3. RISPERIDONE [Concomitant]
     Indication: SCHIZOPHRENIA
     Dosage: 1.5 MG, UNK
     Route: 048
  4. VENLAFAXIN [Concomitant]
     Indication: DEPRESSION
     Dosage: 150 MG, UNK
     Route: 048

REACTIONS (6)
  - Asthma [Unknown]
  - Eosinophilia [Not Recovered/Not Resolved]
  - Deep vein thrombosis [Recovered/Resolved]
  - Gastritis [Recovered/Resolved]
  - Abdominal discomfort [Recovered/Resolved]
  - White blood cell count increased [Unknown]
